FAERS Safety Report 7276573-0 (Version None)
Quarter: 2011Q1

REPORT INFORMATION
  Report Type: 
  Country: None (occurrence: None)
  Receive Date: 20110204
  Receipt Date: 20110124
  Transmission Date: 20110831
  Serious: Yes (Hospitalization, Disabling, Other)
  Sender: FDA-Public Use
  Company Number: BE-CELGENEUS-013-C5013-10060186

PATIENT
  Sex: Female
  Weight: 61.2 kg

DRUGS (9)
  1. PANTOMED [Concomitant]
     Indication: OESOPHAGITIS
     Route: 048
     Dates: start: 20070101
  2. ASPIRIN [Concomitant]
     Indication: THROMBOSIS PROPHYLAXIS
     Route: 048
  3. SINGULAIR [Concomitant]
     Indication: ASTHMA
     Route: 048
     Dates: start: 20060101
  4. CC-5013 [Suspect]
     Indication: MULTIPLE MYELOMA
     Route: 048
     Dates: start: 20100524, end: 20100627
  5. ZALDIAR [Concomitant]
     Route: 065
  6. TRANSTEC [Concomitant]
     Route: 065
  7. LORAZEPAM [Concomitant]
     Route: 048
  8. LYRICA [Concomitant]
     Route: 048
     Dates: start: 20080101
  9. PAROXETINE HCL [Concomitant]
     Indication: DEPRESSION
     Route: 048
     Dates: start: 20080101

REACTIONS (6)
  - DEPRESSION [None]
  - CONSTIPATION [None]
  - COGNITIVE DISORDER [None]
  - ANXIETY [None]
  - INTERSTITIAL LUNG DISEASE [None]
  - PAIN [None]
